FAERS Safety Report 5826683-7 (Version None)
Quarter: 2008Q3

REPORT INFORMATION
  Report Type: 
  Country: None (occurrence: None)
  Receive Date: 20080730
  Receipt Date: 20080225
  Transmission Date: 20090109
  Serious: No
  Sender: FDA-Public Use
  Company Number: US-BAYER-200810902BCC

PATIENT
  Age: 45 Year
  Sex: Female
  Weight: 54 kg

DRUGS (2)
  1. ALEVE COLD AND SINUS [Suspect]
     Indication: NASOPHARYNGITIS
     Route: 048
     Dates: start: 20080224
  2. BIO ALIGN WELLNESS FORMULA VITAMIN [Concomitant]

REACTIONS (2)
  - INSOMNIA [None]
  - RHINALGIA [None]
